FAERS Safety Report 5284275-5 (Version None)
Quarter: 2007Q2

REPORT INFORMATION
  Report Type: 
  Country: None (occurrence: None)
  Receive Date: 20070403
  Receipt Date: 20070328
  Transmission Date: 20071010
  Serious: Yes (Death)
  Sender: FDA-Public Use
  Company Number: PHBS2007CA05411

PATIENT
  Age: 33 Year
  Sex: Male

DRUGS (3)
  1. CYCLOSPORINE [Suspect]
     Indication: BONE MARROW TRANSPLANT
     Route: 065
  2. CYCLOPHOSPHAMIDE [Suspect]
     Indication: BONE MARROW TRANSPLANT
     Dosage: 87.5 MG/KG/D
     Route: 065
  3. ATGAM [Suspect]
     Indication: BONE MARROW TRANSPLANT
     Route: 065

REACTIONS (4)
  - CARDIOTOXICITY [None]
  - MULTI-ORGAN FAILURE [None]
  - PULMONARY TOXICITY [None]
  - RHABDOMYOLYSIS [None]
